FAERS Safety Report 23946769 (Version 1)
Quarter: 2024Q2

REPORT INFORMATION
  Report Type: Spontaneous
  Country: US (occurrence: US)
  Receive Date: 20240606
  Receipt Date: 20240606
  Transmission Date: 20240715
  Serious: Yes (Hospitalization, Other)
  Sender: FDA-Public Use
  Company Number: US-FreseniusKabi-FK202408853

PATIENT
  Age: 64 Year
  Sex: Female

DRUGS (1)
  1. HEPARIN [Suspect]
     Active Substance: HEPARIN SODIUM
     Indication: Anticoagulant therapy

REACTIONS (3)
  - Pulmonary oedema [Recovered/Resolved]
  - Hypersensitivity [Recovering/Resolving]
  - Pleural effusion [Recovering/Resolving]
